FAERS Safety Report 6972809-1 (Version None)
Quarter: 2010Q3

REPORT INFORMATION
  Report Type: 
  Country: None (occurrence: None)
  Receive Date: 20100909
  Receipt Date: 20100809
  Transmission Date: 20110219
  Serious: No
  Sender: FDA-Public Use
  Company Number: US-BAYER-201019559BCC

PATIENT
  Age: 70 Year
  Sex: Female
  Weight: 32 kg

DRUGS (6)
  1. ALEVE (CAPLET) [Suspect]
     Indication: NECK PAIN
     Dosage: TOTAL DAILY DOSE: 440 MG  UNIT DOSE: 220 MG
     Route: 048
     Dates: start: 20100730
  2. CRESTOR [Concomitant]
  3. LASIX [Concomitant]
  4. LISINOPRIL [Concomitant]
  5. ASPIRIN [Concomitant]
  6. POTASSIUM [Concomitant]

REACTIONS (1)
  - FLATULENCE [None]
